FAERS Safety Report 8412359-9 (Version None)
Quarter: 2012Q2

REPORT INFORMATION
  Report Type: 
  Country: None (occurrence: None)
  Receive Date: 20120605
  Receipt Date: 20120531
  Transmission Date: 20120825
  Serious: Yes (Death)
  Sender: FDA-Public Use
  Company Number: JP-ELI_LILLY_AND_COMPANY-JP201203003655

PATIENT
  Age: 77 Year
  Sex: Male

DRUGS (2)
  1. GEMZAR [Suspect]
     Indication: PANCREATIC CARCINOMA
  2. TS 1 [Concomitant]
     Indication: PANCREATIC CARCINOMA

REACTIONS (2)
  - NEOPLASM PROGRESSION [None]
  - MEMORY IMPAIRMENT [None]
